FAERS Safety Report 20615671 (Version 1)
Quarter: 2022Q1

REPORT INFORMATION
  Report Type: Other
  Country: CA (occurrence: CA)
  Receive Date: 20220321
  Receipt Date: 20220321
  Transmission Date: 20220423
  Serious: Yes (Other)
  Sender: FDA-Public Use
  Company Number: CA-CELLTRION INC.-2022CA003071

PATIENT

DRUGS (16)
  1. RITUXIMAB [Suspect]
     Active Substance: RITUXIMAB
     Indication: Rheumatoid arthritis
     Dosage: 1000 MILLIGRAM
     Route: 042
  2. ACETAMINOPHEN [Concomitant]
     Active Substance: ACETAMINOPHEN
     Indication: Premedication
     Dosage: 650 MILLIGRAM
     Route: 048
  3. AMLODIPINE BESYLATE [Concomitant]
     Active Substance: AMLODIPINE BESYLATE
     Route: 065
  4. ARAVA [Concomitant]
     Active Substance: LEFLUNOMIDE
     Route: 065
  5. BENADRYL [Concomitant]
     Active Substance: DIPHENHYDRAMINE HYDROCHLORIDE
     Indication: Premedication
     Dosage: 50 MILLIGRAM
     Route: 048
  6. DILTIAZEM [Concomitant]
     Active Substance: DILTIAZEM
  7. FLUTICASONE [Concomitant]
     Active Substance: FLUTICASONE
     Route: 065
  8. GLYCOPYRROLATE [Concomitant]
     Active Substance: GLYCOPYRROLATE
     Route: 065
  9. INS [Concomitant]
     Route: 065
  10. IRBESARTAN [Concomitant]
     Active Substance: IRBESARTAN
     Route: 065
  11. LANTUS [Concomitant]
     Active Substance: INSULIN GLARGINE
     Route: 065
  12. METHYLPREDNISOLONE SODIUM SUCCINATE [Concomitant]
     Active Substance: METHYLPREDNISOLONE SODIUM SUCCINATE
     Indication: Premedication
     Dosage: 100 MILLIGRAM
     Route: 042
  13. PREDNISONE [Concomitant]
     Active Substance: PREDNISONE
     Route: 065
  14. RABEPRAZOLE [Concomitant]
     Active Substance: RABEPRAZOLE
  15. ROSUVASTATIN [Concomitant]
     Active Substance: ROSUVASTATIN
     Route: 065
  16. ALBUTEROL [Concomitant]
     Active Substance: ALBUTEROL
     Route: 065

REACTIONS (13)
  - Cataract [Not Recovered/Not Resolved]
  - Chest pain [Not Recovered/Not Resolved]
  - Fall [Not Recovered/Not Resolved]
  - Limb injury [Not Recovered/Not Resolved]
  - Muscular weakness [Not Recovered/Not Resolved]
  - Musculoskeletal stiffness [Not Recovered/Not Resolved]
  - Rheumatoid arthritis [Not Recovered/Not Resolved]
  - Road traffic accident [Not Recovered/Not Resolved]
  - Skin abrasion [Not Recovered/Not Resolved]
  - Synovial cyst [Not Recovered/Not Resolved]
  - Transient ischaemic attack [Not Recovered/Not Resolved]
  - Arthralgia [Not Recovered/Not Resolved]
  - Oedema peripheral [Not Recovered/Not Resolved]
